FAERS Safety Report 4919694-7 (Version None)
Quarter: 2006Q1

REPORT INFORMATION
  Report Type: 
  Country: None (occurrence: None)
  Receive Date: 20060217
  Receipt Date: 20060208
  Transmission Date: 20060701
  Serious: Yes (Life-Threatening, Other)
  Sender: FDA-Public Use
  Company Number: HQWYE119920OCT05

PATIENT
  Age: 78 Year
  Sex: Male

DRUGS (5)
  1. ANCARON (AMIODARONE, TABLET) [Suspect]
     Dosage: 200 MG 1X PER 1 DAY, ORAL
     Route: 048
     Dates: start: 20050901
  2. ALDACTONE [Suspect]
  3. DIART (AZOSEMIDE, ) [Suspect]
  4. LANIRAPID (METILDIGOXIN, ) [Suspect]
  5. FUROSEMIDE [Concomitant]

REACTIONS (1)
  - WHITE BLOOD CELL COUNT DECREASED [None]
